FAERS Safety Report 18243591 (Version 2)
Quarter: 2020Q4

REPORT INFORMATION
  Report Type: Spontaneous
  Country: AU (occurrence: AU)
  Receive Date: 20200908
  Receipt Date: 20201015
  Transmission Date: 20210113
  Serious: No
  Sender: FDA-Public Use
  Company Number: AU-INCYTE CORPORATION-2020IN008501

PATIENT

DRUGS (7)
  1. DEXAMETHASONE. [Suspect]
     Active Substance: DEXAMETHASONE
     Indication: CHRONIC GRAFT VERSUS HOST DISEASE
     Route: 065
  2. MYCOPHENOLATE MOFETIL. [Suspect]
     Active Substance: MYCOPHENOLATE MOFETIL
     Indication: CHRONIC GRAFT VERSUS HOST DISEASE
     Dosage: UNK
     Route: 065
  3. RITUXIMAB. [Suspect]
     Active Substance: RITUXIMAB
     Indication: CHRONIC GRAFT VERSUS HOST DISEASE
     Route: 065
  4. CYCLOSPORINE. [Suspect]
     Active Substance: CYCLOSPORINE
     Indication: CHRONIC GRAFT VERSUS HOST DISEASE
     Dosage: UNK
     Route: 065
  5. TACROLIMUS. [Suspect]
     Active Substance: TACROLIMUS
     Indication: CHRONIC GRAFT VERSUS HOST DISEASE
     Route: 065
  6. PREDNISONE. [Suspect]
     Active Substance: PREDNISONE
     Indication: CHRONIC GRAFT VERSUS HOST DISEASE
     Route: 065
  7. METHOTREXATE. [Suspect]
     Active Substance: METHOTREXATE
     Indication: CHRONIC GRAFT VERSUS HOST DISEASE
     Route: 065

REACTIONS (3)
  - Chronic graft versus host disease [Unknown]
  - Disease progression [Unknown]
  - Product use in unapproved indication [Unknown]
